FAERS Safety Report 7146469-3 (Version None)
Quarter: 2010Q4

REPORT INFORMATION
  Report Type: 
  Country: None (occurrence: None)
  Receive Date: 20101208
  Receipt Date: 20101105
  Transmission Date: 20110411
  Serious: Yes (Other)
  Sender: FDA-Public Use
  Company Number: US-PFIZER INC-2010148313

PATIENT
  Age: 22 Year
  Sex: Female
  Weight: 47.6 kg

DRUGS (1)
  1. ADVIL COLD AND SINUS [Suspect]
     Indication: PRODUCT USED FOR UNKNOWN INDICATION
     Dosage: 1 LIQUI-GEL 1 TIME
     Route: 048
     Dates: start: 20101025

REACTIONS (1)
  - LIP SWELLING [None]
